FAERS Safety Report 16785598 (Version 1)
Quarter: 2019Q4

REPORT INFORMATION
  Report Type: Spontaneous
  Country: US (occurrence: US)
  Receive Date: 20190907
  Receipt Date: 20190907
  Transmission Date: 20200122
  Serious: No
  Sender: FDA-Public Use
  Company Number: None

PATIENT
  Age: 43 Year
  Sex: Female
  Weight: 65.25 kg

DRUGS (7)
  1. FIBER GUMMIES [Concomitant]
  2. COLACE AS NEEDED [Concomitant]
  3. MULTIVITAMINS GUMMIES [Concomitant]
  4. TOPAMAX [Concomitant]
     Active Substance: TOPIRAMATE
  5. CREST PRO-HEALTH ADVANCED W/EXTRA DEEP CLEAN [Suspect]
     Active Substance: SODIUM FLUORIDE
     Indication: DENTAL DISORDER PROPHYLAXIS
     Dates: start: 20190601, end: 20190903
  6. MAXALT [Concomitant]
     Active Substance: RIZATRIPTAN BENZOATE
  7. FLONASE AS NEEDED [Concomitant]

REACTIONS (7)
  - Injury [None]
  - Product complaint [None]
  - Mouth swelling [None]
  - Paraesthesia oral [None]
  - Stomatitis [None]
  - Gingival pain [None]
  - Tongue discomfort [None]

NARRATIVE: CASE EVENT DATE: 20190903
